FAERS Safety Report 6565116-2 (Version None)
Quarter: 2010Q1

REPORT INFORMATION
  Report Type: 
  Country: None (occurrence: None)
  Receive Date: 20100201
  Receipt Date: 20100128
  Transmission Date: 20100710
  Serious: Yes (Hospitalization, Other)
  Sender: FDA-Public Use
  Company Number: A0839571A

PATIENT
  Age: 62 Year
  Sex: Female
  Weight: 95 kg

DRUGS (6)
  1. ARIXTRA [Suspect]
     Dosage: 2.5MG PER DAY
     Route: 058
     Dates: start: 20091222, end: 20100107
  2. NEXIUM [Concomitant]
  3. CRESTOR [Concomitant]
  4. DYAZIDE [Concomitant]
  5. ALOPURINOL [Concomitant]
  6. ESTRADIOL [Concomitant]

REACTIONS (3)
  - HEPARIN-INDUCED THROMBOCYTOPENIA TEST [None]
  - PULMONARY EMBOLISM [None]
  - THROMBOPHLEBITIS SUPERFICIAL [None]
